FAERS Safety Report 6968257-0 (Version None)
Quarter: 2010Q3

REPORT INFORMATION
  Report Type: 
  Country: None (occurrence: None)
  Receive Date: 20100907
  Receipt Date: 20100827
  Transmission Date: 20110219
  Serious: Yes (Death)
  Sender: FDA-Public Use
  Company Number: US-ROCHE-716418

PATIENT
  Sex: Female
  Weight: 156 kg

DRUGS (5)
  1. XELODA [Suspect]
     Route: 048
     Dates: start: 20100401, end: 20100705
  2. NEUPOGEN [Concomitant]
     Route: 058
  3. NEULASTA [Concomitant]
     Route: 058
  4. ANZEMET [Concomitant]
  5. DECADRON [Concomitant]

REACTIONS (1)
  - DEATH [None]
